FAERS Safety Report 7778678-4 (Version None)
Quarter: 2011Q3

REPORT INFORMATION
  Report Type: 
  Country: None (occurrence: None)
  Receive Date: 20110926
  Receipt Date: 20110920
  Transmission Date: 20111222
  Serious: Yes (Hospitalization)
  Sender: FDA-Public Use
  Company Number: AT-AMGEN-AUTSP2011023492

PATIENT
  Age: 14 Year
  Sex: Female

DRUGS (2)
  1. DARBEPOETIN ALFA [Suspect]
     Indication: RENAL FAILURE CHRONIC
     Dosage: UNK
     Dates: start: 20110101
  2. CORTISONE ACETATE [Concomitant]

REACTIONS (3)
  - HAEMOLYSIS [None]
  - ANAEMIA [None]
  - TREATMENT NONCOMPLIANCE [None]
